FAERS Safety Report 23658736 (Version 1)
Quarter: 2024Q1

REPORT INFORMATION
  Report Type: Spontaneous
  Country: US (occurrence: None)
  Receive Date: 20240321
  Receipt Date: 20240321
  Transmission Date: 20240409
  Serious: Yes (Hospitalization)
  Sender: FDA-Public Use
  Company Number: 2024A062448

PATIENT
  Sex: Male

DRUGS (2)
  1. IMJUDO [Suspect]
     Active Substance: TREMELIMUMAB\TREMELIMUMAB-ACTL
     Route: 042
     Dates: start: 20221201, end: 20221201
  2. IMFINZI [Suspect]
     Active Substance: DURVALUMAB
     Route: 042
     Dates: start: 20221201, end: 20221201

REACTIONS (3)
  - Diarrhoea [Recovered/Resolved]
  - Dehydration [Recovered/Resolved]
  - Loss of consciousness [Unknown]
